FAERS Safety Report 24654184 (Version 1)
Quarter: 2024Q4

REPORT INFORMATION
  Report Type: Spontaneous
  Country: US (occurrence: None)
  Receive Date: 20241122
  Receipt Date: 20241122
  Transmission Date: 20250114
  Serious: Yes (Life-Threatening, Hospitalization, Disabling)
  Sender: Public
  Company Number: None

PATIENT
  Age: 73 Year
  Sex: Female
  Weight: 56.25 kg

DRUGS (16)
  1. EVENITY [Suspect]
     Active Substance: ROMOSOZUMAB-AQQG
  2. LOSARTAN [Concomitant]
     Active Substance: LOSARTAN
  3. BRILINTA [Concomitant]
     Active Substance: TICAGRELOR
  4. aspirin [Concomitant]
  5. METOPROLOL SUCCINATE [Concomitant]
     Active Substance: METOPROLOL SUCCINATE
  6. ROSUVASTATIN [Concomitant]
  7. TRETINOIN [Concomitant]
     Active Substance: TRETINOIN
  8. CHOLECALCIFEROL [Concomitant]
  9. VITAMIN D3 [Concomitant]
     Active Substance: CHOLECALCIFEROL
  10. ASCORBIC ACID [Concomitant]
     Active Substance: ASCORBIC ACID
  11. Vitamin C [Concomitant]
  12. vitamin e [Concomitant]
  13. CALCIUM CARBONATE [Concomitant]
  14. elemental calcium [Concomitant]
  15. CALCIUM [Concomitant]
  16. CYANOCOBALAMIN [Concomitant]

REACTIONS (1)
  - Acute myocardial infarction [None]

NARRATIVE: CASE EVENT DATE: 20241114
